FAERS Safety Report 8545368-X (Version None)
Quarter: 2012Q3

REPORT INFORMATION
  Report Type: 
  Country: None (occurrence: None)
  Receive Date: 20120727
  Receipt Date: 20120723
  Transmission Date: 20120928
  Serious: No
  Sender: FDA-Public Use
  Company Number: US-PFIZER INC-2012178165

PATIENT
  Sex: Female
  Weight: 68.027 kg

DRUGS (2)
  1. PREMPRO [Suspect]
     Dosage: UNK
  2. PREMPRO [Suspect]
     Indication: HORMONE REPLACEMENT THERAPY
     Dosage: 0.625/2.5 MG, UNK
     Route: 048
     Dates: start: 20000701

REACTIONS (1)
  - DRUG INEFFECTIVE [None]
